FAERS Safety Report 8171506-7 (Version None)
Quarter: 2012Q1

REPORT INFORMATION
  Report Type: 
  Country: None (occurrence: None)
  Receive Date: 20120228
  Receipt Date: 20120216
  Transmission Date: 20120608
  Serious: Yes (Other)
  Sender: FDA-Public Use
  Company Number: CA-ELI_LILLY_AND_COMPANY-CA201201000777

PATIENT
  Age: 72 Year
  Sex: Female

DRUGS (15)
  1. CELEBREX [Concomitant]
  2. PROMETRIUM [Concomitant]
  3. FORTEO [Suspect]
     Indication: OSTEOPOROSIS
     Dosage: 20 UG, QD
     Route: 058
     Dates: start: 20100703, end: 20110722
  4. MULTI-VITAMIN [Concomitant]
  5. NORVASC [Concomitant]
  6. FORTEO [Suspect]
     Dosage: 20 UG, QD
     Route: 058
     Dates: start: 20110730
  7. FORTEO [Suspect]
     Dosage: 20 UG, QOD
     Route: 058
     Dates: start: 20111101
  8. PREMARIN [Concomitant]
  9. IRON [Concomitant]
  10. ALTACE [Concomitant]
  11. SYNTHROID [Concomitant]
  12. RASILEZ [Concomitant]
  13. NEXIUM [Concomitant]
  14. LIPITOR [Concomitant]
  15. VITAMIN D [Concomitant]
     Dosage: 1000 IU, UNK

REACTIONS (6)
  - MUSCULAR WEAKNESS [None]
  - FATIGUE [None]
  - FEMUR FRACTURE [None]
  - DRUG PRESCRIBING ERROR [None]
  - FALL [None]
  - DIZZINESS [None]
